FAERS Safety Report 4915686-2 (Version None)
Quarter: 2006Q1

REPORT INFORMATION
  Report Type: 
  Country: None (occurrence: None)
  Receive Date: 20060214
  Receipt Date: 20060130
  Transmission Date: 20060701
  Serious: Yes (Death, Life-Threatening, Other)
  Sender: FDA-Public Use
  Company Number: 24230

PATIENT
  Age: 66 Year
  Sex: Male
  Weight: 119.296 kg

DRUGS (1)
  1. LEUCOVORIN CALCIUM [Suspect]
     Indication: RECTAL CANCER
     Dosage: 475MG/IV/EVERY 2 WKS
     Dates: start: 20050810, end: 20051116

REACTIONS (3)
  - ACUTE RESPIRATORY DISTRESS SYNDROME [None]
  - PNEUMONIA [None]
  - PULMONARY TOXICITY [None]
